FAERS Safety Report 9940389 (Version 1)
Quarter: 2014Q1

REPORT INFORMATION
  Report Type: Report from Study
  Country: US (occurrence: US)
  Receive Date: 20140303
  Receipt Date: 20140303
  Transmission Date: 20141002
  Serious: Yes (Other)
  Sender: FDA-Public Use
  Company Number: US-ABBVIE-13P-163-1035053-00

PATIENT
  Age: 52 Year
  Sex: Female
  Weight: 83.99 kg

DRUGS (4)
  1. HUMIRA [Suspect]
     Indication: ANKYLOSING SPONDYLITIS
     Dates: start: 20100804
  2. LYRICA [Concomitant]
     Indication: ANKYLOSING SPONDYLITIS
  3. PREDNISONE [Concomitant]
     Indication: ANKYLOSING SPONDYLITIS
  4. MELOXICAM [Concomitant]
     Indication: ANKYLOSING SPONDYLITIS

REACTIONS (3)
  - Arthritis [Recovered/Resolved]
  - Injection site haemorrhage [Recovering/Resolving]
  - Herpes zoster [Recovered/Resolved]
